FAERS Safety Report 7770615-1 (Version None)
Quarter: 2011Q3

REPORT INFORMATION
  Report Type: 
  Country: None (occurrence: None)
  Receive Date: 20110922
  Receipt Date: 20110908
  Transmission Date: 20111222
  Serious: Yes (Other)
  Sender: FDA-Public Use
  Company Number: PHHY2011HU78047

PATIENT
  Sex: Female

DRUGS (7)
  1. DASATINIB [Suspect]
     Dosage: 100 MG, UNK
  2. GLEEVEC [Suspect]
     Dosage: 800 MG, DAILY
     Route: 048
  3. HYDROXYUREA [Concomitant]
     Dates: start: 20020401, end: 20060101
  4. GLEEVEC [Suspect]
     Dosage: 600 MG, DAILY
     Route: 048
  5. DASATINIB [Suspect]
     Dosage: 50 MG, UNK
  6. GLEEVEC [Suspect]
     Indication: CHRONIC MYELOID LEUKAEMIA
     Dosage: 400 MG, DAILY
     Route: 048
     Dates: start: 20060703
  7. RADIATION THERAPY [Concomitant]

REACTIONS (9)
  - VISUAL IMPAIRMENT [None]
  - PYREXIA [None]
  - BONE MARROW FAILURE [None]
  - PANCYTOPENIA [None]
  - THROMBOCYTOPENIA [None]
  - LEUKAEMIA RECURRENT [None]
  - NO THERAPEUTIC RESPONSE [None]
  - NERVOUS SYSTEM DISORDER [None]
  - SPEECH DISORDER [None]
